FAERS Safety Report 10027370 (Version 1)
Quarter: 2014Q1

REPORT INFORMATION
  Report Type: Spontaneous
  Country: ES (occurrence: ES)
  Receive Date: 20140321
  Receipt Date: 20140321
  Transmission Date: 20141002
  Serious: Yes (Other)
  Sender: FDA-Public Use
  Company Number: ES-GILEAD-2014-0097054

PATIENT
  Age: 49 Year
  Sex: Male

DRUGS (4)
  1. VIREAD [Suspect]
     Indication: HEPATITIS B
     Dosage: 245 MG, QD
     Route: 048
     Dates: start: 20131003, end: 20131013
  2. TORASEMIDE [Concomitant]
     Dosage: UNK
     Dates: start: 20130101
  3. LANSOPRAZOL [Concomitant]
     Dosage: 30 MG, QD
     Route: 048
     Dates: start: 20130101
  4. TELMISARTAN [Concomitant]
     Dosage: UNK
     Route: 048
     Dates: start: 20130105

REACTIONS (3)
  - Malaise [Recovered/Resolved]
  - Depressed mood [Recovered/Resolved]
  - Jaundice [Recovered/Resolved]
